FAERS Safety Report 12470004 (Version 2)
Quarter: 2016Q2

REPORT INFORMATION
  Report Type: Report from Study
  Country: US (occurrence: US)
  Receive Date: 20160615
  Receipt Date: 20160622
  Transmission Date: 20160815
  Serious: Yes (Other)
  Sender: FDA-Public Use
  Company Number: US-009507513-1606USA005323

PATIENT
  Age: 58 Year
  Sex: Male

DRUGS (1)
  1. JANUMET [Suspect]
     Active Substance: METFORMIN HYDROCHLORIDE\SITAGLIPTIN PHOSPHATE
     Route: 048

REACTIONS (5)
  - Blood glucose increased [Unknown]
  - Neoplasm [Unknown]
  - Lower respiratory tract infection [Unknown]
  - Weight decreased [Unknown]
  - Visual impairment [Unknown]
